FAERS Safety Report 8090923-7 (Version None)
Quarter: 2012Q1

REPORT INFORMATION
  Report Type: 
  Country: None (occurrence: None)
  Receive Date: 20120128
  Receipt Date: 20110729
  Transmission Date: 20120608
  Serious: Yes (Other)
  Sender: FDA-Public Use
  Company Number: US-ABBOTT-11P-163-0842738-00

PATIENT
  Sex: Female
  Weight: 77.18 kg

DRUGS (11)
  1. MAXZIDE [Concomitant]
     Indication: HYPERTENSION
  2. VITAMIN E [Concomitant]
     Indication: VITAMIN E
  3. HUMIRA [Suspect]
     Indication: RHEUMATOID ARTHRITIS
     Route: 058
     Dates: start: 20110101, end: 20110101
  4. KLOR-CON [Concomitant]
     Indication: MUSCLE SPASMS
  5. LOSARTAN POTASSIUM [Concomitant]
     Indication: HYPERTENSION
  6. LEVOTHYROXINE SODIUM [Concomitant]
     Indication: HYPOTHYROIDISM
  7. FLEXERIL [Concomitant]
     Indication: PAIN IN EXTREMITY
     Dosage: AT BEDTIME
  8. FLEXERIL [Concomitant]
     Indication: MUSCLE SPASMS
  9. HUMIRA [Suspect]
     Route: 058
     Dates: start: 20110401
  10. HUMIRA [Suspect]
     Indication: PSORIASIS
     Route: 058
     Dates: start: 20060101, end: 20101201
  11. STOOL SOFTENER [Concomitant]
     Indication: CONSTIPATION

REACTIONS (5)
  - CATARACT [None]
  - MICTURITION URGENCY [None]
  - PHARYNGEAL OEDEMA [None]
  - DRY MOUTH [None]
  - DYSPHAGIA [None]
